FAERS Safety Report 5280616-3 (Version None)
Quarter: 2007Q1

REPORT INFORMATION
  Report Type: 
  Country: None (occurrence: None)
  Receive Date: 20070329
  Receipt Date: 20070321
  Transmission Date: 20070707
  Serious: Yes (Life-Threatening)
  Sender: FDA-Public Use
  Company Number: HQWYE424121MAR07

PATIENT
  Sex: Female

DRUGS (7)
  1. AMIODARONE HCL [Suspect]
     Indication: ATRIAL FIBRILLATION
     Dosage: 300 MG ONCE
     Route: 042
     Dates: start: 20070228, end: 20070228
  2. CEFTAZIDIME [Concomitant]
     Route: 042
     Dates: start: 20070227
  3. SALMETEROL [Concomitant]
     Dosage: UNKNOWN
     Route: 055
  4. METRONIDAZOLE [Concomitant]
     Route: 042
     Dates: start: 20070227
  5. PREDNISOLONE [Concomitant]
     Indication: POLYMYALGIA RHEUMATICA
  6. CALCICHEW-D3 [Concomitant]
  7. GLYCERYL TRINITRATE [Concomitant]
     Dosage: UNKNOWN
     Route: 042
     Dates: start: 20070228, end: 20070228

REACTIONS (4)
  - BRONCHOSPASM [None]
  - CHILLS [None]
  - TACHYCARDIA [None]
  - TACHYPNOEA [None]
